FAERS Safety Report 6374468-8 (Version None)
Quarter: 2009Q3

REPORT INFORMATION
  Report Type: 
  Country: None (occurrence: None)
  Receive Date: 20090915
  Receipt Date: 20090915
  Transmission Date: 20100115
  Serious: Yes (Life-Threatening)
  Sender: FDA-Public Use
  Company Number: None

PATIENT
  Sex: Female
  Weight: 93.67 kg

DRUGS (1)
  1. NPLATE [Suspect]
     Indication: IDIOPATHIC THROMBOCYTOPENIC PURPURA
     Dosage: 285 MCG WEEKLY SQ
     Route: 058
     Dates: start: 20090801, end: 20090912

REACTIONS (2)
  - COLON CANCER STAGE IV [None]
  - MESENTERIC VEIN THROMBOSIS [None]
